FAERS Safety Report 5081988-5 (Version None)
Quarter: 2006Q3

REPORT INFORMATION
  Report Type: 
  Country: None (occurrence: None)
  Receive Date: 20060811
  Receipt Date: 20060801
  Transmission Date: 20061208
  Serious: Yes (Hospitalization)
  Sender: FDA-Public Use
  Company Number: 2006095085

PATIENT
  Age: 22 Year
  Sex: Male
  Weight: 89 kg

DRUGS (5)
  1. CORTEF [Suspect]
     Indication: ACUTE MYELOID LEUKAEMIA
     Dosage: 50 MG
     Dates: end: 20060627
  2. CYTARABINE [Suspect]
     Indication: ACUTE MYELOID LEUKAEMIA
     Dosage: INTRAVENOUS
     Route: 042
     Dates: start: 20060615, end: 20060618
  3. RANITIDINE HCL [Suspect]
     Indication: DRUG USE FOR UNKNOWN INDICATION
     Dosage: 150 MG (INTERVAL: EVERY DAY), INTRAVENOUS
     Route: 042
     Dates: start: 20060614, end: 20060706
  4. METHOTREXATE [Suspect]
     Indication: ACUTE MYELOID LEUKAEMIA
     Dosage: 15 MG
     Dates: end: 20060627
  5. PIPERACILLIN/TAZOBACTAM (PIPERACILLIN, TAZOBACTAM) [Suspect]
     Indication: PYREXIA
     Dosage: 12 G / 1500 MG (INTERVAL: EVERY  DAY) INTRAVENOUS
     Route: 042
     Dates: end: 20060706

REACTIONS (11)
  - AGITATION [None]
  - ANXIETY [None]
  - APHASIA [None]
  - CONVULSION [None]
  - DEPRESSED LEVEL OF CONSCIOUSNESS [None]
  - HAEMOGLOBIN INCREASED [None]
  - MYDRIASIS [None]
  - NEUTROPHIL COUNT INCREASED [None]
  - PLATELET COUNT DECREASED [None]
  - PYREXIA [None]
  - WHITE BLOOD CELL COUNT DECREASED [None]
